FAERS Safety Report 6114102-5 (Version None)
Quarter: 2009Q1

REPORT INFORMATION
  Report Type: 
  Country: None (occurrence: None)
  Receive Date: 20090312
  Receipt Date: 20080617
  Transmission Date: 20090719
  Serious: No
  Sender: FDA-Public Use
  Company Number: US-ABBOTT-08P-163-0457819-00

PATIENT
  Age: 63 Year
  Sex: Female

DRUGS (5)
  1. DEPAKOTE [Suspect]
     Indication: CONVULSION
     Route: 048
  2. DEPAKOTE [Suspect]
     Route: 048
  3. DEPAKOTE [Suspect]
     Route: 048
  4. ATORVASTATIN CALCIUM [Concomitant]
     Indication: DRUG USE FOR UNKNOWN INDICATION
     Route: 048
  5. CALCIUM CITRATE [Concomitant]
     Indication: DRUG USE FOR UNKNOWN INDICATION
     Route: 048

REACTIONS (3)
  - CONVULSION [None]
  - DRUG LEVEL DECREASED [None]
  - FEELING ABNORMAL [None]
